FAERS Safety Report 5552873-7 (Version None)
Quarter: 2007Q4

REPORT INFORMATION
  Report Type: 
  Country: None (occurrence: None)
  Receive Date: 20071210
  Receipt Date: 20071125
  Transmission Date: 20080405
  Serious: Yes (Other)
  Sender: FDA-Public Use
  Company Number: 2007S1012317

PATIENT
  Age: 33 Year
  Sex: Male

DRUGS (3)
  1. CISPLATIN [Suspect]
     Indication: TESTICULAR GERM CELL CANCER
  2. ETOPOSIDE [Suspect]
     Indication: TESTICULAR GERM CELL CANCER
  3. METHYLPREDNISOLONE [Concomitant]

REACTIONS (5)
  - GENE MUTATION [None]
  - INTRACRANIAL VENOUS SINUS THROMBOSIS [None]
  - PARTIAL SEIZURES [None]
  - SINUS DISORDER [None]
  - SUBARACHNOID HAEMORRHAGE [None]
